FAERS Safety Report 5341190-6 (Version None)
Quarter: 2007Q2

REPORT INFORMATION
  Report Type: 
  Country: None (occurrence: None)
  Receive Date: 20070530
  Receipt Date: 20070516
  Transmission Date: 20071010
  Serious: Yes (Hospitalization, Other)
  Sender: FDA-Public Use
  Company Number: 070509-0000495

PATIENT
  Age: 2 Year
  Sex: Male

DRUGS (4)
  1. NEMBUTAL [Suspect]
     Indication: ANAESTHESIA
     Dosage: 42 MG;
     Dates: start: 20070327, end: 20070327
  2. FENTANYL [Suspect]
     Indication: ANAESTHESIA
     Dosage: 14 UG;
     Dates: start: 20070327, end: 20070327
  3. SODIUM CHLORIDE [Concomitant]
  4. VERSED [Suspect]
     Indication: ANAESTHESIA
     Dosage: 1.4 MG;
     Dates: start: 20070327, end: 20070327

REACTIONS (2)
  - CONVULSION [None]
  - GAIT DISTURBANCE [None]
